FAERS Safety Report 11917207 (Version 2)
Quarter: 2016Q1

REPORT INFORMATION
  Report Type: Spontaneous
  Country: US (occurrence: US)
  Receive Date: 20160114
  Receipt Date: 20160216
  Transmission Date: 20160526
  Serious: No
  Sender: FDA-Public Use
  Company Number: US-PFIZER INC-2015462481

PATIENT
  Age: 45 Year
  Sex: Male

DRUGS (1)
  1. CHILDRENS ADVIL [Suspect]
     Active Substance: IBUPROFEN
     Dosage: ABOUT 1ML LIQUID
     Route: 048
     Dates: start: 20151221, end: 20151221

REACTIONS (5)
  - Product taste abnormal [Recovered/Resolved]
  - Poor quality drug administered [Unknown]
  - Throat irritation [Recovered/Resolved]
  - Dysgeusia [Recovered/Resolved]
  - Drug administered to patient of inappropriate age [Unknown]

NARRATIVE: CASE EVENT DATE: 20151221
